FAERS Safety Report 24173229 (Version 2)
Quarter: 2024Q3

REPORT INFORMATION
  Report Type: Spontaneous
  Country: CA (occurrence: CA)
  Receive Date: 20240805
  Receipt Date: 20240826
  Transmission Date: 20241017
  Serious: Yes (Other)
  Sender: SANDOZ
  Company Number: CA-SANDOZ-SDZ2024CA048494

PATIENT
  Age: 55 Year
  Sex: Female

DRUGS (1)
  1. HYRIMOZ [Suspect]
     Active Substance: ADALIMUMAB-ADAZ
     Indication: Colitis ulcerative
     Dosage: 40 MG, Q2W
     Route: 058
     Dates: start: 20240425

REACTIONS (4)
  - Colitis ulcerative [Recovered/Resolved]
  - Burning sensation [Unknown]
  - COVID-19 [Unknown]
  - Circumstance or information capable of leading to medication error [Unknown]

NARRATIVE: CASE EVENT DATE: 20240425
